FAERS Safety Report 12612357 (Version 1)
Quarter: 2016Q3

REPORT INFORMATION
  Report Type: Spontaneous
  Country: BR (occurrence: BR)
  Receive Date: 20160801
  Receipt Date: 20160801
  Transmission Date: 20161109
  Serious: Yes (Other)
  Sender: FDA-Public Use
  Company Number: BR-BAYER-2016-147913

PATIENT
  Age: 27 Year
  Sex: Female

DRUGS (4)
  1. YAZ [Suspect]
     Active Substance: DROSPIRENONE\ETHINYL ESTRADIOL
     Indication: CONTRACEPTION
     Dosage: UNK
     Route: 048
     Dates: start: 201507
  2. YAZ [Suspect]
     Active Substance: DROSPIRENONE\ETHINYL ESTRADIOL
     Indication: ALOPECIA
  3. YAZ [Suspect]
     Active Substance: DROSPIRENONE\ETHINYL ESTRADIOL
     Indication: VAGINAL HAEMORRHAGE
  4. BENEGRIP [Concomitant]

REACTIONS (6)
  - Chromaturia [None]
  - Vaginal discharge [Recovered/Resolved]
  - Amenorrhoea [Not Recovered/Not Resolved]
  - Discomfort [None]
  - Vaginal discharge [Not Recovered/Not Resolved]
  - Urinary tract infection [None]

NARRATIVE: CASE EVENT DATE: 201607
